FAERS Safety Report 25761066 (Version 1)
Quarter: 2025Q3

REPORT INFORMATION
  Report Type: Spontaneous
  Country: GB (occurrence: GB)
  Receive Date: 20250904
  Receipt Date: 20250904
  Transmission Date: 20251021
  Serious: Yes (Life-Threatening, Hospitalization, Other)
  Sender: ELI LILLY AND COMPANY
  Company Number: None

PATIENT
  Age: 48 Year
  Sex: Female
  Weight: 105 kg

DRUGS (1)
  1. MOUNJARO [Suspect]
     Active Substance: TIRZEPATIDE
     Indication: Weight control
     Route: 065

REACTIONS (10)
  - Cholecystitis acute [Recovered/Resolved]
  - Cholelithiasis [Unknown]
  - Jaundice [Unknown]
  - Liver disorder [Unknown]
  - Biliary obstruction [Unknown]
  - Blood bilirubin increased [Unknown]
  - Gastroenteritis viral [Unknown]
  - Chest pain [Unknown]
  - Illness [Unknown]
  - Constipation [Unknown]

NARRATIVE: CASE EVENT DATE: 20241226
